FAERS Safety Report 7377779-2 (Version None)
Quarter: 2011Q1

REPORT INFORMATION
  Report Type: 
  Country: None (occurrence: None)
  Receive Date: 20110328
  Receipt Date: 20110325
  Transmission Date: 20110831
  Serious: Yes (Hospitalization, Other)
  Sender: FDA-Public Use
  Company Number: US-ROCHE-468468

PATIENT
  Sex: Male
  Weight: 95.3 kg

DRUGS (1)
  1. ACCUTANE [Suspect]
     Dosage: START OF THERAPY IN THE LATE 1980'S / EARLY 1990'S.
     Route: 065

REACTIONS (18)
  - MUSCLE SPASMS [None]
  - IRON DEFICIENCY ANAEMIA [None]
  - BENIGN PROSTATIC HYPERPLASIA [None]
  - INTESTINAL PERFORATION [None]
  - ARTHRITIS [None]
  - ANAEMIA [None]
  - HERPES ZOSTER [None]
  - COLITIS [None]
  - LIP DRY [None]
  - ANXIETY [None]
  - PHARYNGITIS [None]
  - SMALL INTESTINAL OBSTRUCTION [None]
  - CROHN'S DISEASE [None]
  - HYPOTHYROIDISM [None]
  - INFLAMMATORY BOWEL DISEASE [None]
  - PSORIASIS [None]
  - BLOOD CHOLESTEROL INCREASED [None]
  - IRRITABLE BOWEL SYNDROME [None]
